FAERS Safety Report 9791977 (Version 4)
Quarter: 2017Q1

REPORT INFORMATION
  Report Type: Report from Study
  Country: CN (occurrence: CN)
  Receive Date: 20140102
  Receipt Date: 20170120
  Transmission Date: 20170429
  Serious: Yes (Other)
  Sender: FDA-Public Use
  Company Number: CN-ASTELLAS-2013US013494

PATIENT
  Age: 74 Year
  Sex: Female

DRUGS (3)
  1. ERLOTINIB [Suspect]
     Active Substance: ERLOTINIB
     Dosage: 150 MG,1 IN 2 D(EVERY OTHER DAY)
     Route: 065
  2. ERLOTINIB [Suspect]
     Active Substance: ERLOTINIB
     Indication: NON-SMALL CELL LUNG CANCER
     Route: 048
     Dates: start: 20130518
  3. ERLOTINIB [Suspect]
     Active Substance: ERLOTINIB
     Dosage: 150 MG, 1 IN 4 D
     Route: 065

REACTIONS (7)
  - Bedridden [Unknown]
  - Skin discolouration [Recovered/Resolved]
  - Alopecia [Unknown]
  - Vision blurred [Unknown]
  - Metastases to central nervous system [Unknown]
  - Eye oedema [Recovering/Resolving]
  - Pain of skin [Recovered/Resolved]

NARRATIVE: CASE EVENT DATE: 2013
